FAERS Safety Report 9282747 (Version 1)
Quarter: 2013Q2

REPORT INFORMATION
  Report Type: Spontaneous
  Country: US (occurrence: None)
  Receive Date: 20130506
  Receipt Date: 20130506
  Transmission Date: 20140414
  Serious: No
  Sender: FDA-Public Use
  Company Number: US-ALSI-201300090

PATIENT
  Sex: 0

DRUGS (1)
  1. NITROUS OXIDE [Suspect]
     Dosage: 2 DF RESPIRATORY

REACTIONS (2)
  - Drug dependence [None]
  - Drug abuse [None]
